FAERS Safety Report 14899957 (Version 1)
Quarter: 2018Q2

REPORT INFORMATION
  Report Type: Spontaneous
  Country: FR (occurrence: FR)
  Receive Date: 20180516
  Receipt Date: 20180516
  Transmission Date: 20180711
  Serious: Yes (Other)
  Sender: FDA-Public Use
  Company Number: FR-MERCK KGAA-2047863

PATIENT
  Age: 31 Year
  Sex: Female

DRUGS (1)
  1. NOVOTHYROX [Suspect]
     Active Substance: LEVOTHYROXINE SODIUM
     Indication: HYPOTHYROIDISM
     Dates: start: 2017

REACTIONS (25)
  - Asthenia [Recovered/Resolved]
  - Social avoidant behaviour [Recovered/Resolved]
  - Somnolence [Recovered/Resolved]
  - Muscular weakness [Recovered/Resolved]
  - Insomnia [Recovered/Resolved]
  - Myalgia [Recovered/Resolved]
  - Serum ferritin decreased [Recovered/Resolved]
  - Decreased activity [Recovered/Resolved]
  - Emotional disorder [Recovered/Resolved]
  - Headache [Recovered/Resolved]
  - Mean cell haemoglobin decreased [Recovered/Resolved]
  - Mean cell haemoglobin concentration decreased [Recovered/Resolved]
  - Platelet count increased [Not Recovered/Not Resolved]
  - Lymphocyte count decreased [Recovered/Resolved]
  - Neutrophil count decreased [Recovered/Resolved]
  - Monocyte count decreased [Recovered/Resolved]
  - Presyncope [Recovered/Resolved]
  - Irritability [Recovered/Resolved]
  - Personal relationship issue [Recovered/Resolved]
  - Tri-iodothyronine free increased [None]
  - Loss of consciousness [Recovered/Resolved]
  - Red cell distribution width increased [Not Recovered/Not Resolved]
  - Muscle fatigue [Recovered/Resolved]
  - Mood swings [Recovered/Resolved]
  - Muscle spasms [Recovered/Resolved]

NARRATIVE: CASE EVENT DATE: 20170215
